FAERS Safety Report 14752755 (Version 1)
Quarter: 2018Q2

REPORT INFORMATION
  Report Type: Spontaneous
  Country: US (occurrence: US)
  Receive Date: 20180406
  Receipt Date: 20180406
  Transmission Date: 20180711
  Serious: No
  Sender: FDA-Public Use
  Company Number: None

PATIENT
  Age: 47 Year
  Sex: Female
  Weight: 72 kg

DRUGS (4)
  1. FLOUROURACIL [Suspect]
     Active Substance: FLUOROURACIL
     Indication: HYPERKERATOSIS
     Route: 061
     Dates: start: 20180328, end: 20180406
  2. FLOUROURACIL [Suspect]
     Active Substance: FLUOROURACIL
     Indication: ACNE
     Route: 061
     Dates: start: 20180328, end: 20180406
  3. ZYRTEC [Concomitant]
     Active Substance: CETIRIZINE HYDROCHLORIDE
  4. ESCITALOPRAM [Concomitant]
     Active Substance: ESCITALOPRAM OXALATE

REACTIONS (8)
  - Lip blister [None]
  - Burning sensation [None]
  - Lip swelling [None]
  - Ocular hyperaemia [None]
  - Eye pain [None]
  - Rash [None]
  - Eye swelling [None]
  - Swelling face [None]

NARRATIVE: CASE EVENT DATE: 20180405
